FAERS Safety Report 25470145 (Version 1)
Quarter: 2025Q2

REPORT INFORMATION
  Report Type: Report from Study
  Country: US (occurrence: US)
  Receive Date: 20250623
  Receipt Date: 20250623
  Transmission Date: 20250717
  Serious: Yes (Death)
  Sender: ALEXION PHARMACEUTICALS
  Company Number: US-AstraZeneca-CH-00895459A

PATIENT

DRUGS (1)
  1. TICAGRELOR [Suspect]
     Active Substance: TICAGRELOR
     Indication: Stent placement
     Dosage: 90 MILLIGRAM, BID
     Route: 065

REACTIONS (5)
  - Myocardial infarction [Fatal]
  - Drug ineffective [Unknown]
  - Dyspnoea [Unknown]
  - Chest pain [Unknown]
  - Illness [Unknown]
